FAERS Safety Report 5502178-5 (Version None)
Quarter: 2007Q4

REPORT INFORMATION
  Report Type: 
  Country: None (occurrence: None)
  Receive Date: 20071030
  Receipt Date: 20071027
  Transmission Date: 20080405
  Serious: Yes (Other)
  Sender: FDA-Public Use
  Company Number: US-ASTRAZENECA-2007UW24949

PATIENT
  Age: 48 Year
  Sex: Female

DRUGS (2)
  1. NEXIUM [Suspect]
     Route: 048
  2. AMOXICILLIN [Concomitant]

REACTIONS (4)
  - ABASIA [None]
  - FEAR [None]
  - NERVOUSNESS [None]
  - PAIN IN EXTREMITY [None]
